FAERS Safety Report 9723102 (Version 1)
Quarter: 2013Q4

REPORT INFORMATION
  Report Type: Spontaneous
  Country: US (occurrence: None)
  Receive Date: 20131127
  Receipt Date: 20131127
  Transmission Date: 20140711
  Serious: No
  Sender: FDA-Public Use
  Company Number: None

PATIENT
  Age: 29 Year
  Sex: Female
  Weight: 56.7 kg

DRUGS (6)
  1. SUMATRIPTAN SUCCINATE [Suspect]
     Indication: MIGRAINE
     Dosage: 50 MG ?9 PILLS?TWICE UPON ONSET OF HEADACHE?ORALLY
     Route: 048
     Dates: start: 20030101
  2. ORTHO TRI-CYCLEN [Concomitant]
  3. LAMICTAL [Concomitant]
  4. KLONOPIN [Concomitant]
  5. NAPROXEN [Concomitant]
  6. MULTI-VITAMIN [Concomitant]

REACTIONS (10)
  - Asphyxia [None]
  - Heart rate increased [None]
  - Nausea [None]
  - Muscular weakness [None]
  - Somnolence [None]
  - Fear [None]
  - Hyperaesthesia [None]
  - Asthenia [None]
  - Muscle tightness [None]
  - Chest discomfort [None]
